FAERS Safety Report 7261188-0 (Version None)
Quarter: 2011Q1

REPORT INFORMATION
  Report Type: 
  Country: None (occurrence: None)
  Receive Date: 20110130
  Receipt Date: 20100920
  Transmission Date: 20110831
  Serious: No
  Sender: FDA-Public Use
  Company Number: US-ABBOTT-10P-163-0671936-00

PATIENT
  Age: 38 Year
  Sex: Female

DRUGS (2)
  1. PENTASA [Concomitant]
     Indication: PRODUCT USED FOR UNKNOWN INDICATION
     Route: 048
  2. HUMIRA [Suspect]
     Indication: CROHN'S DISEASE
     Dates: start: 20091201

REACTIONS (4)
  - INCREASED TENDENCY TO BRUISE [None]
  - MUSCLE SPASMS [None]
  - DEVICE MALFUNCTION [None]
  - CROHN'S DISEASE [None]
